FAERS Safety Report 26175528 (Version 1)
Quarter: 2025Q4

REPORT INFORMATION
  Report Type: Spontaneous
  Country: US (occurrence: US)
  Receive Date: 20251218
  Receipt Date: 20251218
  Transmission Date: 20260118
  Serious: Yes (Hospitalization, Other)
  Sender: AMGEN
  Company Number: US-AMGEN-USASP2025245509

PATIENT
  Age: 39 Year
  Sex: Male

DRUGS (2)
  1. PREDNISONE [Suspect]
     Active Substance: PREDNISONE
     Indication: Plasma cell mastitis
     Dosage: UNK (EXTENDED COURSE)
     Route: 065
  2. DOXYCYCLINE [Concomitant]
     Active Substance: DOXYCYCLINE
     Indication: Plasma cell mastitis
     Dosage: UNK (EXTENDED COURSE)

REACTIONS (6)
  - Mammary tuberculosis [Recovering/Resolving]
  - Tuberculous pleurisy [Recovering/Resolving]
  - Drug-induced liver injury [Unknown]
  - Drug effective for unapproved indication [Unknown]
  - Off label use [Unknown]
  - Impaired healing [Unknown]
